FAERS Safety Report 17840130 (Version 2)
Quarter: 2020Q2

REPORT INFORMATION
  Report Type: Spontaneous
  Country: US (occurrence: US)
  Receive Date: 20200529
  Receipt Date: 20200603
  Transmission Date: 20200714
  Serious: Yes (Other)
  Sender: FDA-Public Use
  Company Number: US-STRIDES ARCOLAB LIMITED-2020SP006330

PATIENT
  Age: 4 Year
  Sex: Female

DRUGS (14)
  1. MYCOPHENOLATE MOFETIL. [Suspect]
     Active Substance: MYCOPHENOLATE MOFETIL
     Indication: DONOR SPECIFIC ANTIBODY PRESENT
     Dosage: 400 MILLIGRAM/SQ. METER, BID
     Route: 065
  2. MYCOPHENOLATE MOFETIL. [Suspect]
     Active Substance: MYCOPHENOLATE MOFETIL
     Dosage: 420 MILLIGRAM/SQ. METER, BID, DELAYED RELEASED
     Route: 065
  3. PREDNISOLONE. [Suspect]
     Active Substance: PREDNISOLONE
     Indication: RENAL TRANSPLANT
     Dosage: 3 MILLIGRAM DAILY, LOW DOSE
     Route: 048
  4. AZATHIOPRINE. [Suspect]
     Active Substance: AZATHIOPRINE
     Indication: RENAL TRANSPLANT
     Dosage: 1.5 MILLIGRAM/KILOGRAM DAILY
     Route: 065
  5. ALEMTUZUMAB [Suspect]
     Active Substance: ALEMTUZUMAB
     Indication: RENAL TRANSPLANT
     Dosage: 0.5 MILLIGRAM/KILOGRAM, INDUCTION
     Route: 065
     Dates: start: 2013
  6. RITUXIMAB. [Suspect]
     Active Substance: RITUXIMAB
     Indication: TRANSPLANT REJECTION
     Dosage: UNK
     Route: 065
     Dates: start: 2015
  7. TACROLIMUS. [Suspect]
     Active Substance: TACROLIMUS
     Indication: RENAL TRANSPLANT
     Dosage: UNK
     Route: 065
     Dates: start: 2013
  8. MYCOPHENOLATE MOFETIL. [Suspect]
     Active Substance: MYCOPHENOLATE MOFETIL
     Dosage: UNK, RESTARTED
     Route: 065
  9. MYCOPHENOLATE MOFETIL. [Suspect]
     Active Substance: MYCOPHENOLATE MOFETIL
     Dosage: DOSE REDUCED BY 50%, UNK
     Route: 065
     Dates: start: 2017
  10. METHYLPREDNISOLONE. [Suspect]
     Active Substance: METHYLPREDNISOLONE
     Indication: RENAL TRANSPLANT
     Dosage: 5 DAILY DOSES, INDUCTION
     Route: 042
     Dates: start: 2013
  11. PREDNISOLONE. [Suspect]
     Active Substance: PREDNISOLONE
     Dosage: UNK
  12. MYCOPHENOLATE MOFETIL. [Suspect]
     Active Substance: MYCOPHENOLATE MOFETIL
     Dosage: 570 MILLIGRAM/SQ. METER, BID
     Route: 065
  13. TACROLIMUS. [Suspect]
     Active Substance: TACROLIMUS
     Dosage: UNK, REDUCED DOSE
     Route: 065
     Dates: start: 2014
  14. TACROLIMUS. [Suspect]
     Active Substance: TACROLIMUS
     Dosage: UNK, DOSE WAS ADJUSTED TO ACHIEVE TARGET 12 HOUR TROUGH LEVELS OF 4-7 NG/ML
     Route: 065
     Dates: start: 2017

REACTIONS (10)
  - Trichodysplasia spinulosa [Recovered/Resolved]
  - Gastrointestinal disorder [Not Recovered/Not Resolved]
  - Polyomavirus viraemia [Recovered/Resolved]
  - Transplant rejection [Unknown]
  - Intestinal obstruction [Unknown]
  - Pruritus [Recovered/Resolved]
  - Skin hypopigmentation [Recovered/Resolved]
  - Skin lesion [Recovered/Resolved]
  - Diarrhoea [Not Recovered/Not Resolved]
  - Papule [Recovered/Resolved]

NARRATIVE: CASE EVENT DATE: 2014
